FAERS Safety Report 16159253 (Version 2)
Quarter: 2019Q2

REPORT INFORMATION
  Report Type: Spontaneous
  Country: US (occurrence: US)
  Receive Date: 20190404
  Receipt Date: 20190425
  Transmission Date: 20190711
  Serious: No
  Sender: FDA-Public Use
  Company Number: US-AMGEN-USASP2019052343

PATIENT
  Age: 88 Year
  Sex: Male
  Weight: 54.42 kg

DRUGS (2)
  1. PROCRIT [Suspect]
     Active Substance: ERYTHROPOIETIN
     Indication: RENAL FAILURE
     Dosage: 20000 UNIT
     Route: 058
     Dates: start: 20190301, end: 20190322
  2. PROCRIT [Suspect]
     Active Substance: ERYTHROPOIETIN
     Dosage: 30000 UNIT
     Route: 058
     Dates: start: 20190322

REACTIONS (2)
  - Accidental exposure to product [Unknown]
  - Incorrect dose administered [Unknown]

NARRATIVE: CASE EVENT DATE: 20190329
